FAERS Safety Report 8486422-0 (Version None)
Quarter: 2012Q3

REPORT INFORMATION
  Report Type: 
  Country: None (occurrence: None)
  Receive Date: 20120703
  Receipt Date: 20120618
  Transmission Date: 20120928
  Serious: Yes (Other)
  Sender: FDA-Public Use
  Company Number: CHPA2012US013266

PATIENT
  Age: 76 Year
  Sex: Female

DRUGS (4)
  1. EXCEDRIN TENSION HEADACHE CAPLETS [Suspect]
     Indication: ARTHRITIS
     Dosage: 2 DF, UNK
     Route: 048
  2. SIMVASTATIN [Concomitant]
     Indication: BLOOD CHOLESTEROL INCREASED
     Dosage: UNK, UNK
     Route: 048
  3. METOPROLOL SUCCINATE [Concomitant]
     Dosage: UNK, UNK
  4. DRUG THERAPY NOS [Concomitant]
     Dosage: UNK, UNK

REACTIONS (2)
  - OFF LABEL USE [None]
  - ATRIAL FIBRILLATION [None]
